FAERS Safety Report 5983998-X (Version None)
Quarter: 2008Q4

REPORT INFORMATION
  Report Type: 
  Country: None (occurrence: None)
  Receive Date: 20081208
  Receipt Date: 20081202
  Transmission Date: 20090506
  Serious: Yes (Hospitalization, Other)
  Sender: FDA-Public Use
  Company Number: JP-ABBOTT-07P-087-0424559-00

PATIENT
  Sex: Female
  Weight: 54 kg

DRUGS (9)
  1. SEVOFLURANE [Suspect]
     Indication: GENERAL ANAESTHESIA
     Dosage: 1.2-5%
     Route: 055
     Dates: start: 20070302, end: 20070302
  2. PROPOFOL [Interacting]
     Indication: GENERAL ANAESTHESIA
     Dosage: 8 MG/KG/H CONTINUOUS INFUSION
     Route: 042
     Dates: start: 20070302, end: 20070302
  3. ATROPINE SULFATE [Suspect]
     Indication: DRUG THERAPY
     Route: 042
     Dates: start: 20070302, end: 20070302
  4. VECURONIUM BROMIDE [Concomitant]
     Indication: MUSCLE RELAXANT THERAPY
     Route: 042
     Dates: start: 20070302, end: 20070302
  5. SUXAMETHONIUM CHLORIDE [Concomitant]
     Indication: MUSCLE RELAXANT THERAPY
     Route: 042
     Dates: start: 20070302, end: 20070302
  6. LANDIOLOL HYDROCHLORIDE [Concomitant]
     Indication: ARRHYTHMIA PROPHYLAXIS
     Route: 042
     Dates: start: 20070302, end: 20070302
  7. LANDIOLOL HYDROCHLORIDE [Concomitant]
     Indication: HEART RATE ABNORMAL
  8. PHENYLEPHRINE HYDROCHLORIDE [Concomitant]
     Indication: BLOOD PRESSURE DECREASED
     Route: 042
     Dates: start: 20070302, end: 20070302
  9. HYDROCORTISONE [Concomitant]
     Indication: STEROID THERAPY
     Route: 042
     Dates: start: 20070302, end: 20070302

REACTIONS (5)
  - CARDIAC FAILURE CONGESTIVE [None]
  - CARDIOGENIC SHOCK [None]
  - DRUG INTERACTION [None]
  - PULMONARY OEDEMA [None]
  - TACHYCARDIA [None]
